FAERS Safety Report 19513771 (Version 1)
Quarter: 2021Q3

REPORT INFORMATION
  Report Type: Other
  Country: US (occurrence: US)
  Receive Date: 20210709
  Receipt Date: 20210709
  Transmission Date: 20211014
  Serious: Yes (Other)
  Sender: FDA-Public Use
  Company Number: US-ROCHE-2818297

PATIENT
  Sex: Male
  Weight: 63.5 kg

DRUGS (10)
  1. SILVADENE [Concomitant]
     Active Substance: SILVER SULFADIAZINE
     Route: 061
  2. ERIVEDGE [Suspect]
     Active Substance: VISMODEGIB
     Indication: BASAL CELL CARCINOMA
     Dosage: TAKE 1 CAPSULE BY MOUTH EVERY DAY
     Route: 048
  3. ERIVEDGE [Suspect]
     Active Substance: VISMODEGIB
     Indication: BASAL CELL CARCINOMA
  4. HYDROCODONE/ACETAMINOPHEN [Concomitant]
     Active Substance: ACETAMINOPHEN\HYDROCODONE
     Dosage: 5 MG ? 325 MG
  5. TRAMADOL. [Concomitant]
     Active Substance: TRAMADOL
     Dosage: 50 MG ORAL TABLET
  6. PENICILLIN V POTASSIUM. [Concomitant]
     Active Substance: PENICILLIN V POTASSIUM
     Dosage: 500 MG ORAL TABLET
  7. ACETIC ACID. [Concomitant]
     Active Substance: ACETIC ACID
     Dosage: 0.25 % IRRIGATION SOLUTION
     Route: 061
  8. FLORASTOR [SACCHAROMYCES BOULARDII] [Concomitant]
     Route: 048
  9. MUPRICON [Concomitant]
     Dosage: 2 % TOPICAL OINTMENT
  10. SILVER SULFADIAZINE. [Concomitant]
     Active Substance: SILVER SULFADIAZINE
     Dosage: 1 % TOPICAL CREAM

REACTIONS (2)
  - Vision blurred [Unknown]
  - Localised infection [Unknown]
